FAERS Safety Report 17186510 (Version 1)
Quarter: 2019Q4

REPORT INFORMATION
  Report Type: Spontaneous
  Country: US (occurrence: US)
  Receive Date: 20191220
  Receipt Date: 20191220
  Transmission Date: 20200122
  Serious: Yes (Hospitalization, Other)
  Sender: FDA-Public Use
  Company Number: US-ASTRAZENECA-2019SF82558

PATIENT
  Sex: Male
  Weight: 77.1 kg

DRUGS (1)
  1. BYDUREON [Suspect]
     Active Substance: EXENATIDE
     Route: 058

REACTIONS (17)
  - Intervertebral disc compression [Unknown]
  - Stress [Unknown]
  - Device defective [Unknown]
  - Wrong technique in device usage process [Unknown]
  - Intentional product misuse [Unknown]
  - Spinal fracture [Unknown]
  - Blood glucose decreased [Unknown]
  - Intentional device use issue [Unknown]
  - Road traffic accident [Unknown]
  - Injury [Unknown]
  - Injection site haemorrhage [Unknown]
  - Injection site mass [Unknown]
  - Heart injury [Unknown]
  - Blood glucose increased [Unknown]
  - Sternal fracture [Unknown]
  - Hypophagia [Unknown]
  - Device leakage [Unknown]
